FAERS Safety Report 8233996-0 (Version None)
Quarter: 2012Q1

REPORT INFORMATION
  Report Type: 
  Country: None (occurrence: None)
  Receive Date: 20120322
  Receipt Date: 20120314
  Transmission Date: 20120608
  Serious: Yes (Life-Threatening, Hospitalization, Disabling, Other)
  Sender: FDA-Public Use
  Company Number: ACO_29266_2012

PATIENT
  Age: 75 Year
  Sex: Female
  Weight: 62.1 kg

DRUGS (7)
  1. GABAPENTIN [Concomitant]
  2. ANTIBIOTICS (ANTIBIOTICS) [Concomitant]
  3. BACLOFEN [Concomitant]
  4. AMPYRA [Suspect]
     Indication: GAIT DISTURBANCE
     Dosage: 10 MG, BID, ORAL
     Route: 048
     Dates: start: 20100101, end: 20110421
  5. FLUOXETINE [Concomitant]
  6. SIMVASTATIN [Concomitant]
  7. COPAXONE [Concomitant]

REACTIONS (20)
  - AGEUSIA [None]
  - MECHANICAL VENTILATION [None]
  - PNEUMONIA [None]
  - SPEECH DISORDER [None]
  - CONVULSION [None]
  - GAIT DISTURBANCE [None]
  - DIZZINESS [None]
  - CONFUSIONAL STATE [None]
  - SUBDURAL HAEMATOMA [None]
  - FALL [None]
  - MUSCULAR WEAKNESS [None]
  - PATHOGEN RESISTANCE [None]
  - LOSS OF CONSCIOUSNESS [None]
  - CEREBRAL HAEMORRHAGE [None]
  - ACTIVITIES OF DAILY LIVING IMPAIRED [None]
  - ANOSMIA [None]
  - WOUND [None]
  - URINARY TRACT INFECTION [None]
  - POST PROCEDURAL INFECTION [None]
  - SKULL FRACTURE [None]
